FAERS Safety Report 12525954 (Version 1)
Quarter: 2016Q3

REPORT INFORMATION
  Report Type: Spontaneous
  Country: FR (occurrence: FR)
  Receive Date: 20160705
  Receipt Date: 20160705
  Transmission Date: 20161109
  Serious: Yes (Other)
  Sender: FDA-Public Use
  Company Number: FR-AMGEN-FRASP2016085930

PATIENT
  Age: 40 Year
  Sex: Male

DRUGS (1)
  1. ENBREL [Suspect]
     Active Substance: ETANERCEPT
     Indication: PSORIATIC ARTHROPATHY
     Dosage: ONCE WEEKLY
     Route: 065
     Dates: start: 201510, end: 201606

REACTIONS (5)
  - Erythema multiforme [Unknown]
  - Vasculitis [Unknown]
  - Erythema [Unknown]
  - Skin plaque [Unknown]
  - Pruritus [Unknown]

NARRATIVE: CASE EVENT DATE: 20160621
